FAERS Safety Report 12616735 (Version 1)
Quarter: 2016Q3

REPORT INFORMATION
  Report Type: Spontaneous
  Country: DE (occurrence: DE)
  Receive Date: 20160802
  Receipt Date: 20160802
  Transmission Date: 20161109
  Serious: Yes (Other)
  Sender: FDA-Public Use
  Company Number: DE-AMGEN-DEUSP2016098085

PATIENT
  Age: 7 Year
  Sex: Female

DRUGS (1)
  1. ENBREL [Suspect]
     Active Substance: ETANERCEPT
     Indication: JUVENILE IDIOPATHIC ARTHRITIS
     Dosage: 10 MG, UNK
     Route: 065
     Dates: start: 20150331

REACTIONS (2)
  - Juvenile idiopathic arthritis [Unknown]
  - Disease progression [Unknown]

NARRATIVE: CASE EVENT DATE: 20150331
